FAERS Safety Report 20774186 (Version 2)
Quarter: 2022Q2

REPORT INFORMATION
  Report Type: Spontaneous
  Country: US (occurrence: US)
  Receive Date: 20220502
  Receipt Date: 20220603
  Transmission Date: 20220720
  Serious: Yes (Hospitalization)
  Sender: FDA-Public Use
  Company Number: US-BRISTOL-MYERS SQUIBB COMPANY-2022-028952

PATIENT
  Age: 65 Year
  Sex: Female

DRUGS (2)
  1. REVLIMID [Suspect]
     Active Substance: LENALIDOMIDE
     Indication: Plasma cell myeloma
     Dosage: QD X 21 DAYS THEN 7 DAYS OFF
     Route: 048
     Dates: start: 20211101
  2. REVLIMID [Suspect]
     Active Substance: LENALIDOMIDE
     Route: 065
     Dates: start: 202111

REACTIONS (3)
  - Hypersensitivity [Unknown]
  - Adverse event [Unknown]
  - Eye infection [Unknown]

NARRATIVE: CASE EVENT DATE: 20220501
